FAERS Safety Report 6564301-3 (Version None)
Quarter: 2010Q1

REPORT INFORMATION
  Report Type: 
  Country: None (occurrence: None)
  Receive Date: 20100201
  Receipt Date: 20090414
  Transmission Date: 20100710
  Serious: Yes (Other)
  Sender: FDA-Public Use
  Company Number: US-JNJFOC-20081206826

PATIENT
  Sex: Male

DRUGS (2)
  1. LEVAQUIN [Suspect]
     Indication: CELLULITIS
     Route: 048
  2. PREDNISONE [Suspect]
     Indication: ASTHMA
     Dosage: 1.5 TABLET(S) ONCE DAILY
     Route: 065

REACTIONS (3)
  - DEPRESSION [None]
  - PERONEAL NERVE PALSY [None]
  - TENDON RUPTURE [None]
